FAERS Safety Report 16655138 (Version 1)
Quarter: 2019Q3

REPORT INFORMATION
  Report Type: Spontaneous
  Country: ZA (occurrence: ZA)
  Receive Date: 20190801
  Receipt Date: 20190801
  Transmission Date: 20191004
  Serious: No
  Sender: FDA-Public Use
  Company Number: ZA-ALKEM LABORATORIES LIMITED-ZA-ALKEM-2019-01276

PATIENT
  Sex: Female

DRUGS (1)
  1. CEFASYN 500MG [Suspect]
     Active Substance: CEFUROXIME AXETIL
     Indication: ABDOMINAL PAIN
     Dosage: 1 DF, OD
     Route: 048
     Dates: start: 20190123, end: 20190130

REACTIONS (1)
  - Exposure during pregnancy [Unknown]
